FAERS Safety Report 15958383 (Version 1)
Quarter: 2019Q1

REPORT INFORMATION
  Report Type: Spontaneous
  Country: IT (occurrence: IT)
  Receive Date: 20190213
  Receipt Date: 20190213
  Transmission Date: 20190417
  Serious: Yes (Hospitalization)
  Sender: FDA-Public Use
  Company Number: IT-B.I. PHARMACEUTICALS,INC./RIDGEFIELD-2019-12-000494

PATIENT
  Age: 39 Year
  Sex: Female

DRUGS (5)
  1. AIRTAL [Suspect]
     Active Substance: ACECLOFENAC
     Indication: MUSCULOSKELETAL PAIN
     Dosage: 1 DF AS NEEDED; AS REQUIRED
     Route: 048
     Dates: start: 20110725, end: 20110809
  2. PARACETAMOL [Suspect]
     Active Substance: ACETAMINOPHEN
     Indication: MUSCULOSKELETAL PAIN
     Dosage: 1 G AS NEEDED; AS REQUIRED
     Route: 048
     Dates: start: 20110719, end: 20110809
  3. MELOXICAM. [Suspect]
     Active Substance: MELOXICAM
     Indication: MUSCULOSKELETAL PAIN
     Dosage: 1DF AS NEEDED; AS REQUIRED
     Route: 048
     Dates: start: 20110719, end: 20110809
  4. KETOPROFEN. [Suspect]
     Active Substance: KETOPROFEN
     Indication: MUSCULOSKELETAL PAIN
     Dosage: 1 DF AS NEEDED; AS REQUIRED
     Route: 048
     Dates: start: 20110719, end: 20110809
  5. THIOCOLCHICOSIDE [Concomitant]
     Active Substance: THIOCOLCHICOSIDE
     Indication: PRODUCT USED FOR UNKNOWN INDICATION
     Dosage: UNKNOWN
     Route: 065

REACTIONS (2)
  - Thrombocytopenic purpura [Recovered/Resolved]
  - Haemorrhagic diathesis [Recovered/Resolved]

NARRATIVE: CASE EVENT DATE: 20110810
